FAERS Safety Report 7931314 (Version 4)
Quarter: 2013Q1

REPORT INFORMATION
  Report Type: Spontaneous
  Country: US (occurrence: None)
  Receive Date: 20110413
  Receipt Date: 20130206
  Transmission Date: 20140127
  Serious: Yes (Other)
  Sender: FDA-Public Use
  Company Number: 20110249

PATIENT
  Age: 39 Year
  Sex: Female

DRUGS (3)
  1. DEXAMETHASONE SODIUM PHOSPHATE [Suspect]
     Indication: ADDISON^S DISEASE
     Dosage: 4 MG AS NEEDED INTRAMUSCULAR
     Route: 030
     Dates: start: 201003
  2. DEXAMETHASONE SODIUM PHOSPHATE [Suspect]
     Indication: ADDISON^S DISEASE
     Dosage: AS NEEDED INTRAVENOUS DRIP
     Dates: start: 201003
  3. HYDROCORTISONE [Concomitant]

REACTIONS (13)
  - Injection site swelling [None]
  - Injection site erythema [None]
  - Pain in extremity [None]
  - Oedema peripheral [None]
  - Sensory loss [None]
  - Fall [None]
  - Angiopathy [None]
  - Gait disturbance [None]
  - Scar [None]
  - Lung neoplasm [None]
  - Musculoskeletal disorder [None]
  - Terminal state [None]
  - Osteochondrosis [None]
